FAERS Safety Report 5592421-9 (Version None)
Quarter: 2007Q4

REPORT INFORMATION
  Report Type: 
  Country: None (occurrence: None)
  Receive Date: 20071217
  Receipt Date: 20070919
  Transmission Date: 20080405
  Serious: No
  Sender: FDA-Public Use
  Company Number: BDI-010201

PATIENT
  Age: 79 Year
  Sex: Male
  Weight: 102 kg

DRUGS (2)
  1. MULTIHANCE [Suspect]
     Indication: ACOUSTIC NEUROMA
     Dosage: 20 ML IV
     Route: 042
     Dates: start: 20070919, end: 20070919
  2. MULTIHANCE [Suspect]
     Indication: NUCLEAR MAGNETIC RESONANCE IMAGING BRAIN
     Dosage: 20 ML IV
     Route: 042
     Dates: start: 20070919, end: 20070919

REACTIONS (1)
  - HYPERSENSITIVITY [None]
